FAERS Safety Report 8874240 (Version 1)
Quarter: 2012Q4

REPORT INFORMATION
  Report Type: 
  Country: US (occurrence: US)
  Receive Date: 20121030
  Receipt Date: 20121030
  Transmission Date: 20130627
  Serious: Yes (Death, Other)
  Sender: FDA-Public Use
  Company Number: US-ELI_LILLY_AND_COMPANY-US201210007503

PATIENT
  Age: 74 Year
  Sex: Female
  Weight: 63.49 kg

DRUGS (4)
  1. BYETTA [Suspect]
     Indication: TYPE 2 DIABETES MELLITUS
     Dosage: 10 ug, bid
     Dates: start: 20110305, end: 20120922
  2. LEVOTHYROXINE [Concomitant]
     Indication: HYPOTHYROIDISM
     Dosage: 125 ug, qd
     Route: 048
     Dates: end: 20120922
  3. ENALAPRIL [Concomitant]
     Indication: HYPERTENSION
     Dosage: 20 mg, qd
     Route: 048
     Dates: end: 20120922
  4. GLIPIZIDE [Concomitant]
     Indication: TYPE 2 DIABETES MELLITUS
     Dosage: 20 mg, bid
     Route: 048
     Dates: end: 20120922

REACTIONS (7)
  - Death [Fatal]
  - Pancreatitis [Not Recovered/Not Resolved]
  - Organ failure [Not Recovered/Not Resolved]
  - Cholelithiasis [Not Recovered/Not Resolved]
  - Renal cyst [Not Recovered/Not Resolved]
  - Hypotension [Not Recovered/Not Resolved]
  - Oedema [Not Recovered/Not Resolved]
